FAERS Safety Report 15345834 (Version 2)
Quarter: 2019Q1

REPORT INFORMATION
  Report Type: Spontaneous
  Country: US (occurrence: US)
  Receive Date: 20180904
  Receipt Date: 20190130
  Transmission Date: 20190417
  Serious: Yes (Other)
  Sender: FDA-Public Use
  Company Number: US-ABBVIE-18K-163-2414267-00

PATIENT
  Sex: Female

DRUGS (1)
  1. HUMIRA [Suspect]
     Active Substance: ADALIMUMAB
     Indication: HIDRADENITIS
     Route: 058

REACTIONS (8)
  - Peripheral swelling [Unknown]
  - Injection site pain [Unknown]
  - Infection [Unknown]
  - Lupus-like syndrome [Unknown]
  - Malaise [Unknown]
  - Fatigue [Unknown]
  - Joint swelling [Unknown]
  - Arthralgia [Unknown]
